FAERS Safety Report 15756404 (Version 1)
Quarter: 2018Q4

REPORT INFORMATION
  Report Type: Spontaneous
  Country: US (occurrence: US)
  Receive Date: 20181222
  Receipt Date: 20181222
  Transmission Date: 20190205
  Serious: Yes (Hospitalization, Disabling, Other)
  Sender: FDA-Public Use
  Company Number: None

PATIENT
  Age: 68 Year
  Sex: Female
  Weight: 48.6 kg

DRUGS (6)
  1. LEVAQUIN [Suspect]
     Active Substance: LEVOFLOXACIN
     Indication: PNEUMONIA
     Dosage: ?          QUANTITY:8 TABLET(S);?
     Route: 042
  2. VITAMIN K [Concomitant]
     Active Substance: PHYTONADIONE
  3. MELATONIN [Concomitant]
     Active Substance: MELATONIN
  4. NATURE-THROID [Concomitant]
     Active Substance: THYROID, PORCINE
  5. SELENIUM [Concomitant]
     Active Substance: SELENIUM
  6. A AND D NOS [Concomitant]
     Active Substance: DIMETHICONE\ZINC OXIDE OR PETROLATUM

REACTIONS (9)
  - Myalgia [None]
  - Drug hypersensitivity [None]
  - Drug effect variable [None]
  - Overdose [None]
  - Back pain [None]
  - Paraesthesia [None]
  - Ligament pain [None]
  - Weight decreased [None]
  - Basedow^s disease [None]

NARRATIVE: CASE EVENT DATE: 20140920
